FAERS Safety Report 9377358 (Version 2)
Quarter: 2013Q3

REPORT INFORMATION
  Report Type: Spontaneous
  Country: BR (occurrence: BR)
  Receive Date: 20130701
  Receipt Date: 20130708
  Transmission Date: 20140515
  Serious: Yes (Other)
  Sender: FDA-Public Use
  Company Number: BR-PFIZER INC-2013191404

PATIENT
  Age: 76 Year
  Sex: Female

DRUGS (4)
  1. FRONTAL XR [Suspect]
     Indication: ANXIETY
     Dosage: 1 TABLET (0.5MG) IN THE MORNING AND 1 TABLET (0.5MG) AT NIGHT
     Route: 048
     Dates: start: 2007
  2. PRADAXA [Suspect]
     Indication: ANTICOAGULANT THERAPY
     Dosage: UNK
     Dates: start: 201201
  3. PANTOPRAZOL [Concomitant]
     Indication: GASTRIC DISORDER
     Dosage: UNK
  4. DIOVAN [Concomitant]
     Indication: BLOOD PRESSURE ABNORMAL
     Dosage: UNK, EVERY DAY
     Dates: start: 2007

REACTIONS (8)
  - Atrial fibrillation [Recovered/Resolved]
  - Hypertension [Unknown]
  - Muscular weakness [Unknown]
  - Erythema [Unknown]
  - Skin burning sensation [Recovered/Resolved]
  - Pain [Recovered/Resolved]
  - Anxiety [Unknown]
  - Insomnia [Unknown]
